FAERS Safety Report 9619769 (Version 2)
Quarter: 2013Q4

REPORT INFORMATION
  Report Type: Spontaneous
  Country: JP (occurrence: JP)
  Receive Date: 20131014
  Receipt Date: 20131022
  Transmission Date: 20140711
  Serious: Yes (Other)
  Sender: FDA-Public Use
  Company Number: JP-GLAXOSMITHKLINE-B0926582A

PATIENT
  Sex: Female
  Weight: 72 kg

DRUGS (6)
  1. LAMICTAL [Suspect]
     Indication: BIPOLAR DISORDER
     Route: 048
     Dates: start: 20110921, end: 201206
  2. LAMICTAL [Suspect]
     Indication: BIPOLAR DISORDER
     Route: 048
     Dates: start: 20121226
  3. ACETAMINOPHEN [Concomitant]
     Indication: HEADACHE
     Route: 065
     Dates: start: 201211
  4. LAC-B [Concomitant]
     Route: 048
     Dates: start: 20130108, end: 20130210
  5. REBAMIPIDE [Concomitant]
     Route: 048
     Dates: start: 20130108, end: 20130210
  6. RITODRINE HYDROCHLORIDE [Concomitant]
     Route: 048
     Dates: start: 20130130

REACTIONS (2)
  - Exposure during pregnancy [Recovered/Resolved]
  - Caesarean section [Unknown]
